FAERS Safety Report 16378675 (Version 1)
Quarter: 2019Q2

REPORT INFORMATION
  Report Type: Spontaneous
  Country: FR (occurrence: FR)
  Receive Date: 20190531
  Receipt Date: 20190531
  Transmission Date: 20190711
  Serious: Yes (Hospitalization)
  Sender: FDA-Public Use
  Company Number: PHHY2019FR121919

PATIENT
  Age: 30 Year
  Sex: Male

DRUGS (2)
  1. METHADONE [Concomitant]
     Active Substance: METHADONE HYDROCHLORIDE
     Indication: PRODUCT USED FOR UNKNOWN INDICATION
     Dosage: UNK
     Route: 065
  2. RITALINE [Suspect]
     Active Substance: METHYLPHENIDATE HYDROCHLORIDE
     Indication: DRUG USE DISORDER
     Dosage: 1 DF, UNK
     Route: 042
     Dates: start: 20190314, end: 20190314

REACTIONS (2)
  - Drug use disorder [Not Recovered/Not Resolved]
  - Erysipelas [Not Recovered/Not Resolved]

NARRATIVE: CASE EVENT DATE: 20190314
